FAERS Safety Report 7067876-3 (Version None)
Quarter: 2010Q4

REPORT INFORMATION
  Report Type: 
  Country: None (occurrence: None)
  Receive Date: 20101028
  Receipt Date: 20101015
  Transmission Date: 20110411
  Serious: Yes (Other)
  Sender: FDA-Public Use
  Company Number: JP-ELI_LILLY_AND_COMPANY-JP201010002225

PATIENT
  Sex: Male
  Weight: 65 kg

DRUGS (5)
  1. CYMBALTA [Suspect]
     Indication: DEPRESSION
     Dosage: 20 MG, DAILY (1/D)
     Route: 048
     Dates: start: 20100824, end: 20100910
  2. BENZALIN [Concomitant]
     Indication: INSOMNIA
     Dosage: 5 MG, DAILY (1/D)
     Route: 048
     Dates: start: 20100831, end: 20100910
  3. DEPAKENE [Concomitant]
     Indication: EPILEPSY
     Dosage: 1300 MG, DAILY (1/D)
     Route: 048
  4. TEGRETOL [Concomitant]
     Indication: EPILEPSY
     Dosage: 600 MG, DAILY (1/D)
     Route: 048
  5. GABAPEN [Concomitant]
     Indication: EPILEPSY
     Dosage: 1800 MG, DAILY (1/D)
     Route: 048

REACTIONS (1)
  - ACTIVATION SYNDROME [None]
